FAERS Safety Report 17301820 (Version 3)
Quarter: 2020Q3

REPORT INFORMATION
  Report Type: Other
  Country: CA (occurrence: CA)
  Receive Date: 20200122
  Receipt Date: 20200720
  Transmission Date: 20201102
  Serious: Yes (Other)
  Sender: FDA-Public Use
  Company Number: CA-BECTON DICKINSON-2020BDN00007

PATIENT

DRUGS (10)
  1. METHYLDOPA. [Suspect]
     Active Substance: METHYLDOPA
     Route: 064
  2. CHLORHEXIDINE GLUCONATE ORAL RINSE [Suspect]
     Active Substance: CHLORHEXIDINE GLUCONATE
     Route: 064
  3. DICLECTIN [Suspect]
     Active Substance: DOXYLAMINE SUCCINATE\PYRIDOXINE HYDROCHLORIDE
     Route: 064
  4. INSULIN [Suspect]
     Active Substance: INSULIN NOS
     Route: 064
  5. SILDENAFIL. [Suspect]
     Active Substance: SILDENAFIL
     Dosage: UNK
  6. CHLORAPREP [Suspect]
     Active Substance: CHLORHEXIDINE GLUCONATE\ISOPROPYL ALCOHOL
     Route: 064
  7. ACETYLSALICYLIC ACID [Suspect]
     Active Substance: ASPIRIN
     Route: 064
  8. METFORMIN [Suspect]
     Active Substance: METFORMIN HYDROCHLORIDE
     Route: 064
  9. NIFEDIPINE. [Suspect]
     Active Substance: NIFEDIPINE
     Route: 064
  10. SILDENAFIL. [Suspect]
     Active Substance: SILDENAFIL
     Dosage: UNK
     Route: 064

REACTIONS (2)
  - Premature baby [Unknown]
  - Foetal exposure during pregnancy [Unknown]
